FAERS Safety Report 5205451-3 (Version None)
Quarter: 2006Q4

REPORT INFORMATION
  Report Type: 
  Country: None (occurrence: None)
  Receive Date: 20061027
  Receipt Date: 20060217
  Transmission Date: 20070319
  Serious: Yes (Other)
  Sender: FDA-Public Use
  Company Number: HQWYE163416MAR05

PATIENT
  Age: 60 Year
  Sex: Female
  Weight: 47.67 kg

DRUGS (9)
  1. PREMARIN [Suspect]
     Indication: HOT FLUSH
     Dosage: UNSPECIFIED, ORAL
     Route: 048
     Dates: start: 19740101, end: 20031101
  2. PREMARIN [Suspect]
     Indication: NERVOUSNESS
     Dosage: UNSPECIFIED, ORAL
     Route: 048
     Dates: start: 19740101, end: 20031101
  3. CYCRIN [Suspect]
     Indication: DRUG USE FOR UNKNOWN INDICATION
  4. ESTRADERM [Suspect]
     Indication: HOT FLUSH
     Dosage: TOPICAL
     Route: 061
     Dates: start: 19800101
  5. ESTRADERM [Suspect]
     Indication: NERVOUSNESS
     Dosage: TOPICAL
     Route: 061
     Dates: start: 19800101
  6. ALTACE (RAMIPRIL0 [Concomitant]
  7. PLAVIX [Concomitant]
  8. ZOCOR [Concomitant]
  9. ASPIRIN [Concomitant]

REACTIONS (1)
  - BREAST CANCER [None]
